FAERS Safety Report 20190893 (Version 1)
Quarter: 2021Q4

REPORT INFORMATION
  Report Type: Spontaneous
  Country: US (occurrence: US)
  Receive Date: 20211216
  Receipt Date: 20211216
  Transmission Date: 20220303
  Serious: No
  Sender: FDA-Public Use
  Company Number: US-GSKCCFUS-Case-01240833_AE-72723

PATIENT
  Sex: Female

DRUGS (1)
  1. ADVAIR DISKUS [Suspect]
     Active Substance: FLUTICASONE PROPIONATE\SALMETEROL XINAFOATE
     Indication: Product used for unknown indication
     Dosage: 250/50 MCG,1 PUFF,BID
     Route: 055
     Dates: start: 200406

REACTIONS (3)
  - Cheilitis [Unknown]
  - Dry mouth [Unknown]
  - Rash [Unknown]

NARRATIVE: CASE EVENT DATE: 20210101
